FAERS Safety Report 6111012-4 (Version None)
Quarter: 2009Q1

REPORT INFORMATION
  Report Type: 
  Country: None (occurrence: None)
  Receive Date: 20090311
  Receipt Date: 20090227
  Transmission Date: 20090719
  Serious: Yes (Other)
  Sender: FDA-Public Use
  Company Number: PHEH2009US02210

PATIENT
  Sex: Female
  Weight: 58.957 kg

DRUGS (7)
  1. RECLAST [Suspect]
     Indication: OSTEOPOROSIS
     Dosage: 5 MG YEARLY
     Route: 042
     Dates: start: 20081124
  2. CRESTOR [Concomitant]
  3. PLAVIX [Concomitant]
  4. ATENOLOL [Concomitant]
  5. OMEPRAZOLE [Concomitant]
  6. MICARDIS [Concomitant]
  7. AMBIEN [Concomitant]

REACTIONS (3)
  - BLOOD CREATININE INCREASED [None]
  - BLOOD UREA INCREASED [None]
  - HAEMOGLOBIN DECREASED [None]
